FAERS Safety Report 8514131-8 (Version None)
Quarter: 2012Q3

REPORT INFORMATION
  Report Type: 
  Country: None (occurrence: None)
  Receive Date: 20120717
  Receipt Date: 20120703
  Transmission Date: 20120928
  Serious: Yes (Other)
  Sender: FDA-Public Use
  Company Number: TR-MYLANLABS-2012S1013675

PATIENT
  Age: 55 Year
  Sex: Male

DRUGS (1)
  1. LEVOFLOXACIN [Suspect]
     Indication: PNEUMONIA
     Dosage: 500MG
     Route: 051

REACTIONS (4)
  - PSYCHOTIC DISORDER [None]
  - PSYCHOMOTOR HYPERACTIVITY [None]
  - DELIRIUM [None]
  - HALLUCINATION [None]
